FAERS Safety Report 4615724-0 (Version None)
Quarter: 2005Q2

REPORT INFORMATION
  Report Type: 
  Country: None (occurrence: None)
  Receive Date: 20050310
  Receipt Date: 20050127
  Transmission Date: 20051028
  Serious: Yes (Other)
  Sender: FDA-Public Use
  Company Number: A03200403451

PATIENT
  Age: 60 Year
  Sex: Male
  Weight: 136.9863 kg

DRUGS (7)
  1. ELOXATIN-OXALIPLATIN-SOLUTION-OTHER [Suspect]
     Indication: COLORECTAL CANCER METASTATIC
     Dosage: 250 MG Q3W - INTRAVENOUS NOS
     Route: 042
     Dates: start: 20041012, end: 20041012
  2. ELOXATIN - OXALIPLATIN - SOLUTION - OTHER [Suspect]
     Indication: COLORECTAL CANCER METASTATIC
     Dosage: 250 MG Q3W - INTRAVENOUS NOS
     Route: 042
     Dates: start: 20041012, end: 20041012
  3. CAPECITABINE [Concomitant]
  4. DOLASETRON MESILATE [Concomitant]
  5. UNSPECIFIED ANTIHYPERTENSIVES [Concomitant]
  6. CALCIUM GLUCONATE [Concomitant]
  7. MAGNESIUM [Concomitant]

REACTIONS (7)
  - BLOOD PRESSURE INCREASED [None]
  - CONDITION AGGRAVATED [None]
  - FEELING ABNORMAL [None]
  - FLUSHING [None]
  - PARAESTHESIA ORAL [None]
  - SWELLING FACE [None]
  - SWOLLEN TONGUE [None]
